FAERS Safety Report 25589973 (Version 1)
Quarter: 2025Q3

REPORT INFORMATION
  Report Type: Spontaneous
  Country: BR (occurrence: BR)
  Receive Date: 20250722
  Receipt Date: 20250722
  Transmission Date: 20251021
  Serious: Yes (Other)
  Sender: NOVO NORDISK
  Company Number: BR-NOVOPROD-1480555

PATIENT
  Age: 279 Month
  Sex: Female

DRUGS (1)
  1. NOVORAPID [Suspect]
     Active Substance: INSULIN ASPART
     Indication: Product used for unknown indication

REACTIONS (5)
  - Hypoglycaemia [Unknown]
  - Hyperglycaemia [Unknown]
  - Pain [Unknown]
  - Product dose omission issue [Unknown]
  - Product availability issue [Unknown]
